FAERS Safety Report 4301622-9 (Version None)
Quarter: 2004Q1

REPORT INFORMATION
  Report Type: 
  Country: None (occurrence: None)
  Receive Date: 20040218
  Receipt Date: 20031027
  Transmission Date: 20041129
  Serious: Yes (Other)
  Sender: FDA-Public Use
  Company Number: 2003-10-2832

PATIENT
  Age: 48 Year
  Sex: Female
  Weight: 62.1428 kg

DRUGS (12)
  1. PEG-INTRON [Suspect]
     Indication: HEPATITIS C
     Dosage: 96 MCG QWK SUBCUTANEOUS
     Route: 058
     Dates: start: 20030401, end: 20030925
  2. REBETOL [Suspect]
     Indication: HEPATITIS C
     Dosage: 1000-600 MG/D ORAL
     Route: 048
     Dates: start: 20030401, end: 20030925
  3. ZYPREXA [Concomitant]
  4. HYDROCHLOROTHIAZIDE [Concomitant]
  5. ZANAFLEX (TIZANIDINE HCL) [Concomitant]
  6. LEXAPRO [Concomitant]
  7. TRAZODONE HCL [Concomitant]
  8. PREMARIN [Concomitant]
  9. K-DUR 10 [Concomitant]
  10. KLONOPIN [Concomitant]
  11. ULTRACET (TRAMADOL HYDROCHLORIDE/ACETAMINOPHEN) [Concomitant]
  12. WELLBUTRIN SR [Concomitant]

REACTIONS (4)
  - ALOPECIA TOTALIS [None]
  - ANAEMIA [None]
  - NEUTROPENIA [None]
  - WEIGHT DECREASED [None]
